FAERS Safety Report 9358189 (Version 1)
Quarter: 2013Q2

REPORT INFORMATION
  Report Type: Spontaneous
  Country: US (occurrence: None)
  Receive Date: 20130619
  Receipt Date: 20130619
  Transmission Date: 20140414
  Serious: Yes (Other)
  Sender: FDA-Public Use
  Company Number: None

PATIENT
  Age: 55 Year
  Sex: Male
  Weight: 97.5 kg

DRUGS (5)
  1. SUCCINYLCHOLINE [Suspect]
     Route: 040
  2. PROPOFOL [Concomitant]
  3. FENTANYL [Concomitant]
  4. MIDAZOLAM [Concomitant]
  5. LIDOCAINE [Concomitant]

REACTIONS (1)
  - Laryngospasm [None]
